FAERS Safety Report 7382976-6 (Version None)
Quarter: 2011Q1

REPORT INFORMATION
  Report Type: 
  Country: None (occurrence: None)
  Receive Date: 20110330
  Receipt Date: 20110316
  Transmission Date: 20110831
  Serious: Yes (Other)
  Sender: FDA-Public Use
  Company Number: GB-RANBAXY-2009RR-27767

PATIENT
  Age: 23 Year
  Sex: Female

DRUGS (4)
  1. ASPIRIN [Suspect]
     Indication: PRODUCT USED FOR UNKNOWN INDICATION
     Dosage: 300 MG, UNK
     Route: 065
  2. DIPYRIDAMOLE [Suspect]
     Indication: PRODUCT USED FOR UNKNOWN INDICATION
     Dosage: 200 MG, UNK
     Route: 065
  3. ASPIRIN [Suspect]
     Dosage: 75 MG, UNK
     Route: 065
  4. SUMATRIPTAN SUCCINATE [Suspect]
     Indication: HEADACHE
     Dosage: 25 MG, BID
     Route: 048

REACTIONS (10)
  - PYREXIA [None]
  - PARAESTHESIA [None]
  - DRUG INEFFECTIVE [None]
  - MUCOSAL HAEMORRHAGE [None]
  - EMOTIONAL DISTRESS [None]
  - HEADACHE [None]
  - NAUSEA [None]
  - MUSCULAR WEAKNESS [None]
  - ISCHAEMIC STROKE [None]
  - THROMBOCYTOPENIA [None]
